FAERS Safety Report 5945887-6 (Version None)
Quarter: 2008Q4

REPORT INFORMATION
  Report Type: 
  Country: None (occurrence: None)
  Receive Date: 20081110
  Receipt Date: 20081106
  Transmission Date: 20090506
  Serious: Yes (Hospitalization)
  Sender: FDA-Public Use
  Company Number: US-JNJFOC-20080702119

PATIENT
  Sex: Male
  Weight: 98.43 kg

DRUGS (2)
  1. LEVAQUIN [Suspect]
     Indication: ARTHROPOD BITE
     Route: 048
  2. UNSPECIFIED MEDICATIONS [Concomitant]

REACTIONS (7)
  - CHROMATURIA [None]
  - DISORIENTATION [None]
  - ESCHAR [None]
  - PYREXIA [None]
  - RASH [None]
  - SKIN EXFOLIATION [None]
  - WEIGHT DECREASED [None]
